FAERS Safety Report 8538424-3 (Version None)
Quarter: 2012Q3

REPORT INFORMATION
  Report Type: 
  Country: None (occurrence: None)
  Receive Date: 20120712
  Receipt Date: 20120628
  Transmission Date: 20120928
  Serious: Yes (Other)
  Sender: FDA-Public Use
  Company Number: 2012MA008162

PATIENT

DRUGS (1)
  1. ENULOSE [Suspect]
     Dosage: PO
     Route: 048

REACTIONS (3)
  - ANGIOEDEMA [None]
  - HYPERSENSITIVITY [None]
  - BRONCHOSPASM [None]
